FAERS Safety Report 21395614 (Version 1)
Quarter: 2022Q3

REPORT INFORMATION
  Report Type: Spontaneous
  Country: US (occurrence: US)
  Receive Date: 20220930
  Receipt Date: 20220930
  Transmission Date: 20221027
  Serious: Yes (Hospitalization)
  Sender: FDA-Public Use
  Company Number: US-BRISTOL-MYERS SQUIBB COMPANY-2022-113669

PATIENT
  Age: 78 Year
  Sex: Male

DRUGS (1)
  1. POMALYST [Interacting]
     Active Substance: POMALIDOMIDE
     Indication: Product used for unknown indication
     Route: 048

REACTIONS (1)
  - Drug interaction [Unknown]
